FAERS Safety Report 7437146-X (Version None)
Quarter: 2011Q2

REPORT INFORMATION
  Report Type: 
  Country: None (occurrence: None)
  Receive Date: 20110426
  Receipt Date: 20110420
  Transmission Date: 20111010
  Serious: Yes (Death)
  Sender: FDA-Public Use
  Company Number: US-SANOFI-AVENTIS-2011SA025269

PATIENT
  Sex: Male

DRUGS (4)
  1. TRAZODONE [Suspect]
     Indication: INSOMNIA
     Route: 048
  2. CELEXA [Suspect]
     Indication: INSOMNIA
     Route: 048
  3. ZOLPIDEM TARTRATE [Suspect]
     Indication: INSOMNIA
     Route: 048
  4. WELLBUTRIN [Suspect]
     Indication: INSOMNIA
     Route: 048

REACTIONS (5)
  - DROWNING [None]
  - DRUG INEFFECTIVE [None]
  - COMPLETED SUICIDE [None]
  - EMOTIONAL DISORDER [None]
  - OVERDOSE [None]
